FAERS Safety Report 9552237 (Version 1)
Quarter: 2013Q3

REPORT INFORMATION
  Report Type: Spontaneous
  Country: KR (occurrence: KR)
  Receive Date: 20130925
  Receipt Date: 20130925
  Transmission Date: 20140515
  Serious: Yes (Hospitalization, Other)
  Sender: FDA-Public Use
  Company Number: KR-JNJFOC-20130911398

PATIENT
  Sex: 0

DRUGS (1)
  1. OXYBUTYNIN HYDROCHLORIDE, S- [Suspect]
     Indication: NEUROGENIC BLADDER
     Route: 048

REACTIONS (6)
  - Kidney fibrosis [Unknown]
  - Pyelonephritis acute [Unknown]
  - Dry mouth [Unknown]
  - Flushing [Unknown]
  - Decreased appetite [Unknown]
  - Off label use [Unknown]
